FAERS Safety Report 18612576 (Version 1)
Quarter: 2020Q4

REPORT INFORMATION
  Report Type: Spontaneous
  Country: ES (occurrence: ES)
  Receive Date: 20201214
  Receipt Date: 20201214
  Transmission Date: 20210114
  Serious: Yes (Life-Threatening, Hospitalization, Other)
  Sender: FDA-Public Use
  Company Number: ES-GILEAD-2020-0508736

PATIENT
  Age: 43 Year
  Sex: Male
  Weight: 74 kg

DRUGS (4)
  1. VALIUM [Concomitant]
     Active Substance: DIAZEPAM
  2. ZYDELIG [Suspect]
     Active Substance: IDELALISIB
     Indication: NON-HODGKIN^S LYMPHOMA
     Dosage: 150 MG/ 12 H
     Route: 048
     Dates: start: 20201023, end: 20201121
  3. ACCOFIL [Concomitant]
     Active Substance: FILGRASTIM
  4. APALOZ [Concomitant]
     Active Substance: ARIPIPRAZOLE

REACTIONS (4)
  - Colitis [Not Recovered/Not Resolved]
  - Hepatocellular injury [Recovered/Resolved]
  - Diarrhoea [Recovering/Resolving]
  - Coagulopathy [Recovered/Resolved]

NARRATIVE: CASE EVENT DATE: 20201118
